FAERS Safety Report 17968468 (Version 2)
Quarter: 2020Q3

REPORT INFORMATION
  Report Type: Spontaneous
  Country: US (occurrence: US)
  Receive Date: 20200701
  Receipt Date: 20200811
  Transmission Date: 20201103
  Serious: Yes (Other)
  Sender: FDA-Public Use
  Company Number: US-GILEAD-2020-0477643

PATIENT
  Sex: Female

DRUGS (1)
  1. TRUVADA [Suspect]
     Active Substance: EMTRICITABINE\TENOFOVIR DISOPROXIL FUMARATE
     Indication: PROPHYLAXIS AGAINST HIV INFECTION
     Dosage: UNK
     Route: 048
     Dates: start: 20170519

REACTIONS (7)
  - Tooth loss [Not Recovered/Not Resolved]
  - Dental caries [Unknown]
  - Bone density decreased [Not Recovered/Not Resolved]
  - Osteoporosis [Unknown]
  - Bone loss [Unknown]
  - Fracture [Unknown]
  - Osteonecrosis [Unknown]
